FAERS Safety Report 14741493 (Version 3)
Quarter: 2018Q3

REPORT INFORMATION
  Report Type: Report from Study
  Country: None (occurrence: US)
  Receive Date: 20180410
  Receipt Date: 20180711
  Transmission Date: 20181010
  Serious: Yes (Hospitalization, Other)
  Sender: FDA-Public Use
  Company Number: US-ABBVIE-18S-163-2313594-00

PATIENT
  Age: 6 Year
  Sex: Female

DRUGS (3)
  1. LUPRON DEPOT?PED [Suspect]
     Active Substance: LEUPROLIDE ACETATE
     Route: 030
     Dates: start: 2005, end: 20180404
  2. LUPRON DEPOT?PED [Suspect]
     Active Substance: LEUPROLIDE ACETATE
     Indication: PRECOCIOUS PUBERTY
     Route: 065
  3. VALIUM [Concomitant]
     Active Substance: DIAZEPAM
     Indication: SEIZURE

REACTIONS (9)
  - Blood albumin decreased [Not Recovered/Not Resolved]
  - Somnolence [Not Recovered/Not Resolved]
  - Hypokalaemia [Unknown]
  - Blood sodium increased [Recovered/Resolved]
  - Blood potassium decreased [Recovered/Resolved]
  - Glutathione synthetase deficiency [Not Recovered/Not Resolved]
  - Blood calcium decreased [Recovered/Resolved]
  - Diarrhoea [Unknown]
  - Seizure [Recovered/Resolved]

NARRATIVE: CASE EVENT DATE: 201804
